FAERS Safety Report 10864878 (Version 1)
Quarter: 2015Q1

REPORT INFORMATION
  Report Type: Spontaneous
  Country: JP (occurrence: JP)
  Receive Date: 20150223
  Receipt Date: 20150223
  Transmission Date: 20150721
  Serious: Yes (Hospitalization, Other)
  Sender: FDA-Public Use
  Company Number: JP-009507513-0804USA02068

PATIENT
  Age: 76 Year
  Sex: Female

DRUGS (11)
  1. ACTONEL [Concomitant]
     Active Substance: RISEDRONATE SODIUM
     Indication: OSTEOPOROSIS
     Dosage: 2.5 MG, QD
     Route: 048
     Dates: start: 20030618, end: 20030910
  2. FOSAMAX [Suspect]
     Active Substance: ALENDRONATE SODIUM
     Dosage: 5 MG, QD
     Route: 048
     Dates: start: 20030910, end: 20070227
  3. FOSAMAX [Suspect]
     Active Substance: ALENDRONATE SODIUM
     Dosage: 5 MG, QD
     Route: 048
     Dates: start: 20070303
  4. MOHRUS [Concomitant]
     Active Substance: KETOPROFEN
     Route: 061
     Dates: start: 20030108
  5. ROCALTROL [Concomitant]
     Active Substance: CALCITRIOL
     Indication: OSTEOPOROSIS
     Dosage: 2 G, QD
     Route: 048
     Dates: start: 19980325, end: 20030618
  6. CAMPHOR (+) MENTHOL (+) METHYL SALICYLATE [Concomitant]
     Indication: OSTEOARTHRITIS
     Route: 061
     Dates: start: 19980325, end: 19991006
  7. LOXONIN [Concomitant]
     Active Substance: LOXOPROFEN SODIUM
     Indication: EXCORIATION
     Dosage: 540 MG, QD
     Route: 048
     Dates: start: 20041107, end: 20041108
  8. FOSAMAX [Suspect]
     Active Substance: ALENDRONATE SODIUM
     Indication: OSTEOPOROSIS
     Dosage: 5 MG, UNK
     Route: 048
     Dates: start: 20020320, end: 20020403
  9. CALCIUM LACTATE [Concomitant]
     Active Substance: CALCIUM LACTATE
     Indication: OSTEOPOROSIS
     Dosage: 2 G, QD
     Route: 048
     Dates: start: 19980325, end: 20030108
  10. SELBEX [Concomitant]
     Active Substance: TEPRENONE
     Indication: EXCORIATION
     Dosage: 450 MG, QD
     Route: 048
     Dates: start: 20041107, end: 20041108
  11. FLOMOX [Concomitant]
     Active Substance: CEFCAPENE PIVOXIL HYDROCHLORIDE HYDRATE
     Indication: EXCORIATION
     Dosage: 900 MG, QD
     Route: 048
     Dates: start: 20041106, end: 20041110

REACTIONS (1)
  - Femur fracture [Recovered/Resolved with Sequelae]

NARRATIVE: CASE EVENT DATE: 20070227
